FAERS Safety Report 4269600-6 (Version None)
Quarter: 2004Q1

REPORT INFORMATION
  Report Type: 
  Country: None (occurrence: None)
  Receive Date: 20040112
  Receipt Date: 20040102
  Transmission Date: 20041129
  Serious: Yes (Other)
  Sender: FDA-Public Use
  Company Number: 2003184774CA

PATIENT
  Age: 32 Year
  Sex: Female
  Weight: 59.9 kg

DRUGS (4)
  1. CAMPTOSAR [Suspect]
     Indication: COLON CANCER METASTATIC
     Dosage: 430 MG, IV
     Route: 042
     Dates: start: 20031104, end: 20031201
  2. DILAUDID [Concomitant]
  3. DEXAMETHASONE [Concomitant]
  4. ZOFRAN [Concomitant]

REACTIONS (9)
  - BLOOD PRESSURE INCREASED [None]
  - DYSARTHRIA [None]
  - FACIAL PALSY [None]
  - HEART RATE DECREASED [None]
  - MIOSIS [None]
  - MUSCLE TWITCHING [None]
  - NAUSEA [None]
  - VISION BLURRED [None]
  - VOMITING [None]
